FAERS Safety Report 26135488 (Version 1)
Quarter: 2025Q4

REPORT INFORMATION
  Report Type: Spontaneous
  Country: US (occurrence: US)
  Receive Date: 20251209
  Receipt Date: 20251209
  Transmission Date: 20260117
  Serious: No
  Sender: NOVEN
  Company Number: US-NOVEN PHARMACEUTICALS, INC.-2025-NOV-US001601

PATIENT
  Sex: Female
  Weight: 80.272 kg

DRUGS (1)
  1. ESTRADIOL [Suspect]
     Active Substance: ESTRADIOL
     Indication: Hormone replacement therapy
     Dosage: 0.075 MG, TWICE A WEEK
     Route: 062

REACTIONS (1)
  - Product ineffective [Unknown]

NARRATIVE: CASE EVENT DATE: 20250101
